FAERS Safety Report 9344457 (Version 1)
Quarter: 2013Q2

REPORT INFORMATION
  Report Type: Spontaneous
  Country: CA (occurrence: CA)
  Receive Date: 20130612
  Receipt Date: 20130612
  Transmission Date: 20140414
  Serious: Yes (Other)
  Sender: FDA-Public Use
  Company Number: CA-TEVA-411783USA

PATIENT
  Age: 80 Year
  Sex: Female

DRUGS (1)
  1. CLOPIDOGREL [Suspect]
     Dosage: 75 MILLIGRAM DAILY;
     Route: 065

REACTIONS (3)
  - Anticoagulation drug level below therapeutic [Unknown]
  - Drug ineffective [Unknown]
  - Transient ischaemic attack [Unknown]
